FAERS Safety Report 20363936 (Version 1)
Quarter: 2022Q1

REPORT INFORMATION
  Report Type: Spontaneous
  Country: US (occurrence: US)
  Receive Date: 20220121
  Receipt Date: 20220121
  Transmission Date: 20220424
  Serious: Yes (Life-Threatening, Hospitalization)
  Sender: FDA-Public Use
  Company Number: US-AMERICAN REGENT INC-2022000143

PATIENT
  Age: 40 Year
  Sex: Female
  Weight: 138 kg

DRUGS (6)
  1. VENOFER [Suspect]
     Active Substance: IRON SUCROSE
     Indication: Product used for unknown indication
     Dosage: UNK
  2. VENOFER [Suspect]
     Active Substance: IRON SUCROSE
     Dosage: 100 MG (25TH DOSE)
     Dates: start: 20211130, end: 20211130
  3. MIRCERA [Suspect]
     Active Substance: METHOXY POLYETHYLENE GLYCOL-EPOETIN BETA
     Indication: Nephrogenic anaemia
     Dosage: 150 MCG, 1 IN 2 WK
     Dates: start: 20210917
  4. MIRCERA [Suspect]
     Active Substance: METHOXY POLYETHYLENE GLYCOL-EPOETIN BETA
     Dosage: 150 MCG, 1 IN 2 WK (7TH DOSE)
     Dates: start: 20211130, end: 20211130
  5. HECTOROL [Suspect]
     Active Substance: DOXERCALCIFEROL
     Indication: Product used for unknown indication
     Dosage: UNK
     Route: 065
  6. HECTOROL [Suspect]
     Active Substance: DOXERCALCIFEROL
     Dosage: 3 MCG (39TH DOSE)
     Dates: start: 20211130, end: 20211130

REACTIONS (1)
  - Drug hypersensitivity [Recovered/Resolved]

NARRATIVE: CASE EVENT DATE: 20211130
